FAERS Safety Report 6536241-7 (Version None)
Quarter: 2010Q1

REPORT INFORMATION
  Report Type: 
  Country: None (occurrence: None)
  Receive Date: 20100113
  Receipt Date: 20091106
  Transmission Date: 20100710
  Serious: No
  Sender: FDA-Public Use
  Company Number: US-ALLERGAN-0915371US

PATIENT
  Age: 84 Year
  Sex: Female

DRUGS (8)
  1. LATISSE [Suspect]
     Indication: GROWTH OF EYELASHES
     Dosage: 1 GTT, QHS
     Route: 061
     Dates: start: 20090701
  2. SYNTHROID [Concomitant]
  3. BONIVA [Concomitant]
  4. PREMARIN [Concomitant]
  5. PLAVIX [Concomitant]
  6. PRAVASTATIN [Concomitant]
  7. PROAIR HFA [Concomitant]
  8. SYMBICORT [Concomitant]

REACTIONS (1)
  - DRUG INEFFECTIVE [None]
